FAERS Safety Report 17484368 (Version 3)
Quarter: 2020Q3

REPORT INFORMATION
  Report Type: Spontaneous
  Country: US (occurrence: US)
  Receive Date: 20200302
  Receipt Date: 20200828
  Transmission Date: 20201102
  Serious: Yes (Other)
  Sender: FDA-Public Use
  Company Number: US-GILEAD-2020-0452914

PATIENT
  Age: 53 Year
  Sex: Male
  Weight: 65.76 kg

DRUGS (41)
  1. NORVASC [Concomitant]
     Active Substance: AMLODIPINE BESYLATE
  2. PEG 3350 [Concomitant]
     Active Substance: POLYETHYLENE GLYCOL 3350
  3. EVOTAZ [Concomitant]
     Active Substance: ATAZANAVIR SULFATE\COBICISTAT
  4. REYATAZ [Concomitant]
     Active Substance: ATAZANAVIR SULFATE
  5. TIVICAY [Concomitant]
     Active Substance: DOLUTEGRAVIR SODIUM
  6. ACETAMINOPHEN;HYDROCODONE [Concomitant]
     Active Substance: ACETAMINOPHEN\HYDROCODONE
  7. ATENOLOL. [Concomitant]
     Active Substance: ATENOLOL
  8. COREG [Concomitant]
     Active Substance: CARVEDILOL
  9. IBUPROFEN. [Concomitant]
     Active Substance: IBUPROFEN
  10. ALBUTEROL [SALBUTAMOL] [Concomitant]
     Active Substance: ALBUTEROL
  11. ISENTRESS [Concomitant]
     Active Substance: RALTEGRAVIR POTASSIUM
  12. NORVIR [Concomitant]
     Active Substance: RITONAVIR
  13. VIRAMUNE [Concomitant]
     Active Substance: NEVIRAPINE
  14. METOPROLOL. [Concomitant]
     Active Substance: METOPROLOL
  15. VIGAMOX [Concomitant]
     Active Substance: MOXIFLOXACIN HYDROCHLORIDE
  16. TRAMADOL. [Concomitant]
     Active Substance: TRAMADOL
  17. VIREAD [Suspect]
     Active Substance: TENOFOVIR DISOPROXIL FUMARATE
     Indication: HIV INFECTION
     Dosage: UNK
     Route: 048
     Dates: start: 20110126, end: 20160112
  18. AMOXICILLIN. [Concomitant]
     Active Substance: AMOXICILLIN
  19. DIURIL [CHLOROTHIAZIDE SODIUM] [Concomitant]
  20. EPZICOM [Concomitant]
     Active Substance: ABACAVIR SULFATE\LAMIVUDINE
  21. INTELENCE [Concomitant]
     Active Substance: ETRAVIRINE
  22. TERAZOSIN [Concomitant]
     Active Substance: TERAZOSIN HYDROCHLORIDE
  23. TERBINAFINE. [Concomitant]
     Active Substance: TERBINAFINE
  24. ACETAMINOPHEN. [Concomitant]
     Active Substance: ACETAMINOPHEN
  25. ALENDRONATE [Concomitant]
     Active Substance: ALENDRONATE SODIUM
  26. EPIVIR [Concomitant]
     Active Substance: LAMIVUDINE
  27. LANZOPRAZOL [Concomitant]
     Active Substance: LANSOPRAZOLE
  28. NAPROZEN [Concomitant]
     Active Substance: NAPROXEN
  29. FLUCONAZOLE. [Concomitant]
     Active Substance: FLUCONAZOLE
  30. TRUVADA [Suspect]
     Active Substance: EMTRICITABINE\TENOFOVIR DISOPROXIL FUMARATE
     Indication: HIV INFECTION
     Dosage: UNK
     Route: 048
     Dates: start: 20110119, end: 20110125
  31. LANSOPRAZOLE. [Concomitant]
     Active Substance: LANSOPRAZOLE
  32. PENICILLIN NOS [Concomitant]
     Active Substance: PENICILLIN
  33. CHLORHEXIDINE [Concomitant]
     Active Substance: CHLORHEXIDINE
  34. TRIFLURIDINE. [Concomitant]
     Active Substance: TRIFLURIDINE
  35. AMITRIPTYLINE [Concomitant]
     Active Substance: AMITRIPTYLINE
  36. PRAVASTATIN. [Concomitant]
     Active Substance: PRAVASTATIN
  37. DIURIL [CHLOROTHIAZIDE] [Concomitant]
  38. CYCLOBENZAPRINE. [Concomitant]
     Active Substance: CYCLOBENZAPRINE
  39. COMBIVIR [Concomitant]
     Active Substance: LAMIVUDINE\ZIDOVUDINE
  40. PREZCOBIX [Concomitant]
     Active Substance: COBICISTAT\DARUNAVIR ETHANOLATE
  41. ETODOLAC. [Concomitant]
     Active Substance: ETODOLAC

REACTIONS (17)
  - Emotional distress [Unknown]
  - Chronic kidney disease [Not Recovered/Not Resolved]
  - Osteoporosis [Not Recovered/Not Resolved]
  - Fracture [Unknown]
  - Renal tubular disorder [Unknown]
  - Economic problem [Unknown]
  - Anhedonia [Unknown]
  - Pain [Unknown]
  - Bone density decreased [Unknown]
  - Rib fracture [Not Recovered/Not Resolved]
  - Hyperparathyroidism secondary [Unknown]
  - Hypophosphataemia [Unknown]
  - Stress fracture [Recovered/Resolved]
  - Osteomalacia [Not Recovered/Not Resolved]
  - Renal failure [Not Recovered/Not Resolved]
  - Anxiety [Unknown]
  - Osteopenia [Not Recovered/Not Resolved]

NARRATIVE: CASE EVENT DATE: 20120718
